FAERS Safety Report 16384502 (Version 1)
Quarter: 2019Q2

REPORT INFORMATION
  Report Type: Spontaneous
  Country: IT (occurrence: IT)
  Receive Date: 20190603
  Receipt Date: 20190603
  Transmission Date: 20190711
  Serious: Yes (Other)
  Sender: FDA-Public Use
  Company Number: IT-TASMAN PHARMA, INC.-2019TSM00036

PATIENT
  Age: 45 Year
  Sex: Female

DRUGS (8)
  1. SODIUM VALPROATE [Concomitant]
     Active Substance: VALPROATE SODIUM
     Route: 065
  2. CLOZAPINE. [Suspect]
     Active Substance: CLOZAPINE
     Dosage: 125 MG, 1X/DAY
     Route: 065
  3. DELORAZEPAM [Concomitant]
     Active Substance: DELORAZEPAM
     Route: 065
  4. ESCITALOPRAM [Concomitant]
     Active Substance: ESCITALOPRAM OXALATE
     Route: 065
  5. CLOZAPINE. [Suspect]
     Active Substance: CLOZAPINE
     Indication: SCHIZOPHRENIA
     Dosage: 25 MG, 1X/DAY
     Route: 065
     Dates: start: 201301, end: 2013
  6. HALOPERIDOL. [Concomitant]
     Active Substance: HALOPERIDOL
     Route: 065
  7. CLOZAPINE. [Suspect]
     Active Substance: CLOZAPINE
     Dosage: 250 MG, 1X/DAY
     Route: 065
     Dates: start: 2013
  8. PREGABALIN. [Concomitant]
     Active Substance: PREGABALIN
     Route: 065

REACTIONS (2)
  - Eosinopenia [Recovering/Resolving]
  - Antipsychotic drug level increased [Recovering/Resolving]
